FAERS Safety Report 24928706 (Version 1)
Quarter: 2025Q1

REPORT INFORMATION
  Report Type: Spontaneous
  Country: AU (occurrence: AU)
  Receive Date: 20250205
  Receipt Date: 20250205
  Transmission Date: 20250409
  Serious: Yes (Life-Threatening, Hospitalization, Other)
  Sender: ALKEM
  Company Number: None

PATIENT
  Age: 39 Year
  Sex: Male

DRUGS (5)
  1. LIDOCAINE [Suspect]
     Active Substance: LIDOCAINE
     Indication: Local anaesthesia
     Route: 065
  2. QUETIAPINE FUMARATE [Suspect]
     Active Substance: QUETIAPINE FUMARATE
     Indication: Product used for unknown indication
     Route: 065
  3. SILDENAFIL [Suspect]
     Active Substance: SILDENAFIL
     Indication: Product used for unknown indication
     Route: 065
  4. FLUCLOXACILLIN [Concomitant]
     Active Substance: FLUCLOXACILLIN
     Indication: Product used for unknown indication
     Route: 042
  5. Tetanus Vaccine Booster [Concomitant]
     Indication: Immunisation
     Route: 030

REACTIONS (8)
  - Hallucination [Unknown]
  - Blindness [Unknown]
  - Agitation [Unknown]
  - Mobility decreased [Unknown]
  - Priapism [Recovered/Resolved]
  - Accidental overdose [Unknown]
  - Local anaesthetic systemic toxicity [Unknown]
  - Product administration error [Unknown]
